FAERS Safety Report 7963989-X (Version None)
Quarter: 2011Q4

REPORT INFORMATION
  Report Type: 
  Country: None (occurrence: None)
  Receive Date: 20111208
  Receipt Date: 20111128
  Transmission Date: 20120403
  Serious: Yes (Hospitalization)
  Sender: FDA-Public Use
  Company Number: US-BAYER-2011-045226

PATIENT
  Age: 19 Year
  Sex: Female
  Weight: 89.796 kg

DRUGS (5)
  1. HYDROCODONE CP [Concomitant]
     Dosage: UNK
     Dates: start: 20090209, end: 20090217
  2. PROPOXYPHENE HYDROCHLORIDE [Concomitant]
     Dosage: UNK
     Dates: start: 20090126
  3. YAZ [Suspect]
     Indication: CONTRACEPTION
     Dosage: UNK
     Dates: start: 20080501, end: 20081101
  4. NAPROXEN [Concomitant]
     Dosage: UNK
     Dates: start: 20090217
  5. YASMIN [Suspect]
     Indication: CONTRACEPTION
     Dosage: UNK
     Dates: start: 20081101, end: 20090401

REACTIONS (7)
  - INJURY [None]
  - PULMONARY EMBOLISM [None]
  - CHEST PAIN [None]
  - EMOTIONAL DISTRESS [None]
  - PAIN [None]
  - GENERAL PHYSICAL HEALTH DETERIORATION [None]
  - ANXIETY [None]
